FAERS Safety Report 10256120 (Version 3)
Quarter: 2018Q4

REPORT INFORMATION
  Report Type: Spontaneous
  Country: CA (occurrence: CA)
  Receive Date: 20140624
  Receipt Date: 20181012
  Transmission Date: 20190204
  Serious: Yes (Death, Hospitalization, Other)
  Sender: FDA-Public Use
  Company Number: CA-PFIZER INC-2014173343

PATIENT
  Age: 47 Year
  Sex: Female

DRUGS (14)
  1. FLEXERIL [Interacting]
     Active Substance: CYCLOBENZAPRINE HYDROCHLORIDE
     Dosage: 40 MG, DAILY
  2. FENTANYL. [Interacting]
     Active Substance: FENTANYL
     Dosage: 150 MCG/HR, FREQ: 1 HOUR; INTERVAL: 1
     Route: 062
     Dates: start: 20120620
  3. NICOTINE. [Interacting]
     Active Substance: NICOTINE
     Dosage: UNK
     Route: 065
  4. CYCLOBENZAPRINE. [Interacting]
     Active Substance: CYCLOBENZAPRINE
     Dosage: 40 MG, DAILY
     Route: 065
  5. OXYNEO [Interacting]
     Active Substance: OXYCODONE
     Dosage: UNK
     Route: 065
  6. OXYCODONE [Interacting]
     Active Substance: OXYCODONE
     Dosage: UNK
     Route: 065
  7. DILAUDID [Interacting]
     Active Substance: HYDROMORPHONE HYDROCHLORIDE
     Dosage: UNK, AS NEEDED (2-4 MG, PRN)
     Route: 065
     Dates: end: 20120620
  8. MORPHINE SULFATE. [Suspect]
     Active Substance: MORPHINE SULFATE
     Dosage: 10 MG, UNK
     Route: 065
     Dates: start: 20120607
  9. OXYCONTIN [Interacting]
     Active Substance: OXYCODONE HYDROCHLORIDE
     Dosage: UNK
     Route: 065
  10. AMITRIPTYLINE [Interacting]
     Active Substance: AMITRIPTYLINE
     Dosage: UNK
     Route: 065
  11. FENTANYL. [Interacting]
     Active Substance: FENTANYL
     Dosage: 75 MCG/HR, FREQ: 1 HOUR; INTERVAL: 1
     Route: 062
     Dates: end: 20120620
  12. NAPROXEN. [Interacting]
     Active Substance: NAPROXEN
     Dosage: UNK
     Route: 065
  13. ENDOCET [Interacting]
     Active Substance: ACETAMINOPHEN\OXYCODONE HYDROCHLORIDE
     Dosage: UNK
     Route: 065
  14. ALCOHOL. [Interacting]
     Active Substance: ALCOHOL
     Dosage: UNK
     Route: 065

REACTIONS (25)
  - Infection [Fatal]
  - Mental impairment [Fatal]
  - Anxiety [Fatal]
  - Drug interaction [Fatal]
  - Tachycardia [Fatal]
  - Gastric dilatation [Fatal]
  - Intentional product misuse [Fatal]
  - Loss of consciousness [Fatal]
  - Cardiac death [Fatal]
  - Myocardial infarction [Fatal]
  - Sedation [Fatal]
  - Somnolence [Fatal]
  - Paraesthesia [Fatal]
  - Dysarthria [Fatal]
  - Nausea [Fatal]
  - Respiratory arrest [Fatal]
  - Dizziness [Fatal]
  - Emotional disorder [Fatal]
  - Gait disturbance [Fatal]
  - Drug tolerance [Fatal]
  - Malaise [Fatal]
  - Pulmonary oedema [Fatal]
  - Functional gastrointestinal disorder [Fatal]
  - Depressed mood [Fatal]
  - Overdose [Fatal]
